FAERS Safety Report 21251542 (Version 1)
Quarter: 2022Q3

REPORT INFORMATION
  Report Type: Spontaneous
  Country: US (occurrence: US)
  Receive Date: 20220825
  Receipt Date: 20220825
  Transmission Date: 20221026
  Serious: Yes (Other)
  Sender: FDA-Public Use
  Company Number: US-AUROBINDO-AUR-APL-2022-033774

PATIENT
  Age: 18 Month

DRUGS (1)
  1. MELATONIN [Suspect]
     Active Substance: MELATONIN
     Indication: Insomnia
     Dosage: UNK
     Route: 063

REACTIONS (3)
  - Haemorrhage [Recovered/Resolved]
  - Platelet aggregation decreased [Recovered/Resolved]
  - Exposure via breast milk [Recovered/Resolved]
